FAERS Safety Report 9055152 (Version 1)
Quarter: 2013Q1

REPORT INFORMATION
  Report Type: Spontaneous
  Country: CH (occurrence: CH)
  Receive Date: 20130206
  Receipt Date: 20130206
  Transmission Date: 20140127
  Serious: Yes (Other)
  Sender: FDA-Public Use
  Company Number: CH-JNJFOC-20130113958

PATIENT
  Age: 46 Year
  Sex: Male

DRUGS (4)
  1. INFLIXIMAB, RECOMBINANT [Suspect]
     Indication: BEHCET^S SYNDROME
     Dosage: DOSE OF 5MG/KG
     Route: 042
  2. AZATHIOPRINE [Suspect]
     Indication: BACK PAIN
     Route: 065
  3. GLUCOCORTICOIDS [Suspect]
     Indication: NEUROGENIC BLADDER
     Route: 042
  4. PREDNISONE [Suspect]
     Indication: PRODUCT USED FOR UNKNOWN INDICATION
     Route: 065

REACTIONS (2)
  - Bacterial disease carrier [Unknown]
  - Myelitis [Unknown]
